FAERS Safety Report 16623299 (Version 2)
Quarter: 2019Q3

REPORT INFORMATION
  Report Type: Report from Study
  Country: None (occurrence: GB)
  Receive Date: 20190724
  Receipt Date: 20190903
  Transmission Date: 20191004
  Serious: Yes (Disabling, Other)
  Sender: FDA-Public Use
  Company Number: GB-ABBVIE-19K-167-2818222-00

PATIENT
  Age: 46 Year
  Sex: Female
  Weight: 140 kg

DRUGS (15)
  1. MORPHINE SULFATE. [Concomitant]
     Active Substance: MORPHINE SULFATE
     Indication: PRODUCT USED FOR UNKNOWN INDICATION
     Dosage: 10MG\5ML?ONE 5 ML SPOONFUL FOUR TIMES A DAY
     Dates: start: 20190423
  2. ERYTHROMYCIN. [Concomitant]
     Active Substance: ERYTHROMYCIN
     Indication: PRODUCT USED FOR UNKNOWN INDICATION
  3. DICLOFENAC SODIUM. [Concomitant]
     Active Substance: DICLOFENAC SODIUM
     Indication: PRODUCT USED FOR UNKNOWN INDICATION
     Dates: start: 20190614
  4. GABAPENTIN. [Concomitant]
     Active Substance: GABAPENTIN
     Indication: PRODUCT USED FOR UNKNOWN INDICATION
     Dates: start: 20190614
  5. CLARITHROMYCIN. [Concomitant]
     Active Substance: CLARITHROMYCIN
     Indication: PRODUCT USED FOR UNKNOWN INDICATION
  6. MEBEVERINE [Concomitant]
     Active Substance: MEBEVERINE
     Indication: PRODUCT USED FOR UNKNOWN INDICATION
     Dates: start: 20190521
  7. HUMIRA [Suspect]
     Active Substance: ADALIMUMAB
     Indication: PSORIATIC ARTHROPATHY
     Route: 058
     Dates: start: 201110, end: 20181014
  8. AMOXICILLIN. [Concomitant]
     Active Substance: AMOXICILLIN
     Indication: PRODUCT USED FOR UNKNOWN INDICATION
  9. MIRTAZAPINE. [Concomitant]
     Active Substance: MIRTAZAPINE
     Indication: PRODUCT USED FOR UNKNOWN INDICATION
     Dosage: ONE PER NIGHT
     Dates: start: 20190614
  10. LANSOPRAZOLE. [Concomitant]
     Active Substance: LANSOPRAZOLE
     Indication: PRODUCT USED FOR UNKNOWN INDICATION
     Dates: start: 20190614
  11. FULTIUM D3 [Concomitant]
     Active Substance: CHOLECALCIFEROL
     Indication: PRODUCT USED FOR UNKNOWN INDICATION
     Dates: start: 20190614
  12. METRONIDAZOLE. [Concomitant]
     Active Substance: METRONIDAZOLE
     Indication: PRODUCT USED FOR UNKNOWN INDICATION
     Dates: start: 20190521
  13. AMITRIPTYLINE [Concomitant]
     Active Substance: AMITRIPTYLINE
     Indication: PRODUCT USED FOR UNKNOWN INDICATION
  14. FLUCLOXACILLIN [Concomitant]
     Active Substance: FLUCLOXACILLIN
     Indication: PRODUCT USED FOR UNKNOWN INDICATION
  15. CLARITHROMYCIN. [Concomitant]
     Active Substance: CLARITHROMYCIN
     Indication: PRODUCT USED FOR UNKNOWN INDICATION

REACTIONS (31)
  - Speech disorder [Unknown]
  - Joint swelling [Unknown]
  - Plantar fasciitis [Unknown]
  - Musculoskeletal pain [Unknown]
  - Pain in extremity [Unknown]
  - Liver function test abnormal [Unknown]
  - Persistent depressive disorder [Unknown]
  - Arthralgia [Unknown]
  - Necrotising colitis [Unknown]
  - Multiple sclerosis [Unknown]
  - Cholelithiasis [Unknown]
  - Blood glucose fluctuation [Unknown]
  - Biliary colic [Recovered/Resolved]
  - Ingrowing nail [Unknown]
  - CSF immunoglobulin increased [Unknown]
  - Adrenal adenoma [Unknown]
  - Nail avulsion [Unknown]
  - Demyelination [Not Recovered/Not Resolved]
  - Spinal osteoarthritis [Unknown]
  - Biliary colic [Unknown]
  - Psoriasis [Unknown]
  - Bile duct stone [Unknown]
  - Vitamin D deficiency [Unknown]
  - Hyperglycaemia [Unknown]
  - Haemorrhoids [Unknown]
  - Melanocytic naevus [Unknown]
  - Pericardial effusion [Unknown]
  - Meniscus injury [Unknown]
  - Hypoaesthesia [Unknown]
  - Pericardial effusion [Recovered/Resolved]
  - Musculoskeletal stiffness [Unknown]

NARRATIVE: CASE EVENT DATE: 20120329
